FAERS Safety Report 8820084 (Version 5)
Quarter: 2013Q3

REPORT INFORMATION
  Report Type: Spontaneous
  Country: US (occurrence: US)
  Receive Date: 20121001
  Receipt Date: 20130826
  Transmission Date: 20140515
  Serious: Yes (Hospitalization, Disabling, Other)
  Sender: FDA-Public Use
  Company Number: US-009507513-1209USA010247

PATIENT
  Sex: Female
  Weight: 57.14 kg

DRUGS (3)
  1. FOSAMAX [Suspect]
     Indication: OSTEOPOROSIS
     Dosage: 70 MG, WEEKLY
     Route: 048
     Dates: start: 20051109, end: 2006
  2. FOSAMAX [Suspect]
     Dosage: UNK, QD
     Route: 048
  3. FOSAMAX PLUS D [Suspect]
     Indication: OSTEOPOROSIS
     Dosage: 70/2800 MG, UNK
     Route: 048
     Dates: start: 2006, end: 201009

REACTIONS (20)
  - Femur fracture [Not Recovered/Not Resolved]
  - Intramedullary rod insertion [Unknown]
  - Pain [Unknown]
  - Mental disorder [Unknown]
  - Injury [Unknown]
  - Emotional distress [Unknown]
  - Hyperlipidaemia [Unknown]
  - Sternal fracture [Unknown]
  - Fractured sacrum [Unknown]
  - Joint injury [Unknown]
  - Spinal osteoarthritis [Unknown]
  - Calcinosis [Unknown]
  - Vascular calcification [Unknown]
  - Syncope [Unknown]
  - Hypertension [Unknown]
  - Gait disturbance [Unknown]
  - Muscular weakness [Unknown]
  - Vitamin D deficiency [Unknown]
  - Vitamin B12 deficiency [Unknown]
  - Skin lesion [Unknown]
